FAERS Safety Report 18409299 (Version 1)
Quarter: 2020Q4

REPORT INFORMATION
  Report Type: Report from Study
  Country: US (occurrence: US)
  Receive Date: 20201021
  Receipt Date: 20201021
  Transmission Date: 20210114
  Serious: Yes (Hospitalization, Other)
  Sender: FDA-Public Use
  Company Number: US-VANDA PHARMACEUTICALS, INC-2020ILOUS001811

PATIENT
  Age: 35 Year
  Sex: Male
  Weight: 72.56 kg

DRUGS (2)
  1. FANAPT [Suspect]
     Active Substance: ILOPERIDONE
     Indication: SCHIZOPHRENIA
     Dosage: 6 MG, QD AS NEEDED
     Route: 048
     Dates: start: 202001
  2. FANAPT [Suspect]
     Active Substance: ILOPERIDONE
     Indication: BIPOLAR DISORDER

REACTIONS (8)
  - Perforated ulcer [Unknown]
  - Suicide attempt [Unknown]
  - Vomiting [Unknown]
  - Anxiety disorder due to a general medical condition [Unknown]
  - Abdominal discomfort [Unknown]
  - Inappropriate schedule of product administration [Unknown]
  - Diarrhoea [Unknown]
  - Mental disorder [Unknown]

NARRATIVE: CASE EVENT DATE: 202010
